FAERS Safety Report 19410711 (Version 18)
Quarter: 2022Q4

REPORT INFORMATION
  Report Type: Spontaneous
  Country: CA (occurrence: CA)
  Receive Date: 20210614
  Receipt Date: 20221210
  Transmission Date: 20230113
  Serious: Yes (Hospitalization, Other)
  Sender: FDA-Public Use
  Company Number: CA-CELLTRION INC.-2021CA008051

PATIENT

DRUGS (38)
  1. INFLECTRA [Suspect]
     Active Substance: INFLIXIMAB-DYYB
     Indication: Crohn^s disease
     Dosage: 1300MG  EVERY 8 WEEKS
     Route: 042
     Dates: start: 20210528
  2. INFLECTRA [Suspect]
     Active Substance: INFLIXIMAB-DYYB
     Dosage: 1300MG  EVERY 4 WEEKS
     Route: 042
     Dates: start: 20210528
  3. INFLECTRA [Suspect]
     Active Substance: INFLIXIMAB-DYYB
     Dosage: 600 MG, EVERY 8 WEEKS
     Route: 042
     Dates: start: 20210528
  4. INFLECTRA [Suspect]
     Active Substance: INFLIXIMAB-DYYB
     Dosage: 600 MG, EVERY 8 WEEKS
     Route: 042
     Dates: start: 20210528
  5. INFLECTRA [Suspect]
     Active Substance: INFLIXIMAB-DYYB
     Dosage: 600 MG, EVERY 8 WEEKS
     Route: 042
     Dates: start: 20210611
  6. INFLECTRA [Suspect]
     Active Substance: INFLIXIMAB-DYYB
     Dosage: 1300MG, EVERY 8 WEEKS
     Route: 042
     Dates: start: 20210712
  7. INFLECTRA [Suspect]
     Active Substance: INFLIXIMAB-DYYB
     Dosage: 1300MG, EVERY 8 WEEKS
     Route: 042
     Dates: start: 20210712
  8. INFLECTRA [Suspect]
     Active Substance: INFLIXIMAB-DYYB
     Dosage: 1300MG, EVERY 8 WEEKS
     Route: 042
     Dates: start: 20211109
  9. INFLECTRA [Suspect]
     Active Substance: INFLIXIMAB-DYYB
     Dosage: 1300MG, EVERY 8 WEEKS
     Route: 042
     Dates: start: 20220110
  10. INFLECTRA [Suspect]
     Active Substance: INFLIXIMAB-DYYB
     Dosage: 1300MG, EVERY 8 WEEKS
     Route: 042
     Dates: start: 20220110
  11. INFLECTRA [Suspect]
     Active Substance: INFLIXIMAB-DYYB
     Dosage: 1300MG, EVERY 8 WEEKS
     Route: 042
     Dates: start: 20220303
  12. INFLECTRA [Suspect]
     Active Substance: INFLIXIMAB-DYYB
     Dosage: 1300MG, EVERY 8 WEEKS
     Route: 042
     Dates: start: 20220303
  13. INFLECTRA [Suspect]
     Active Substance: INFLIXIMAB-DYYB
     Dosage: 1300MG, EVERY 8 WEEKS
     Route: 042
     Dates: start: 20220428, end: 20220428
  14. INFLECTRA [Suspect]
     Active Substance: INFLIXIMAB-DYYB
     Dosage: 1300MG, EVERY 4 WEEKS
     Route: 042
     Dates: start: 20220428
  15. INFLECTRA [Suspect]
     Active Substance: INFLIXIMAB-DYYB
     Dosage: 1300MG, EVERY 4 WEEKS
     Route: 042
     Dates: start: 20220428
  16. INFLECTRA [Suspect]
     Active Substance: INFLIXIMAB-DYYB
     Dosage: 1300MG, EVERY 4 WEEKS
     Route: 042
     Dates: start: 20220428
  17. INFLECTRA [Suspect]
     Active Substance: INFLIXIMAB-DYYB
     Dosage: 1300MG, EVERY 4 WEEKS
     Route: 042
     Dates: start: 20220706
  18. INFLECTRA [Suspect]
     Active Substance: INFLIXIMAB-DYYB
     Dosage: 1300MG, EVERY 4 WEEKS
     Route: 042
     Dates: start: 20220706
  19. INFLECTRA [Suspect]
     Active Substance: INFLIXIMAB-DYYB
     Dosage: 1300MG, EVERY 4 WEEKS
     Route: 042
     Dates: start: 20220706
  20. INFLECTRA [Suspect]
     Active Substance: INFLIXIMAB-DYYB
     Dosage: 1300MG, EVERY 4 WEEKS
     Route: 042
     Dates: start: 20220706
  21. INFLECTRA [Suspect]
     Active Substance: INFLIXIMAB-DYYB
     Dosage: 1300MG, EVERY 4 WEEKS
     Route: 042
     Dates: start: 20220706
  22. INFLECTRA [Suspect]
     Active Substance: INFLIXIMAB-DYYB
     Dosage: 1300MG, EVERY 4 WEEKS
     Route: 042
     Dates: start: 20220816
  23. INFLECTRA [Suspect]
     Active Substance: INFLIXIMAB-DYYB
     Dosage: 1300MG, EVERY 4 WEEKS
     Route: 042
     Dates: start: 20220816
  24. INFLECTRA [Suspect]
     Active Substance: INFLIXIMAB-DYYB
     Dosage: 1300MG, EVERY 4 WEEKS
     Route: 042
     Dates: start: 20220816
  25. INFLECTRA [Suspect]
     Active Substance: INFLIXIMAB-DYYB
     Dosage: 1300MG, EVERY 4 WEEKS
     Route: 042
     Dates: start: 20221003
  26. INFLECTRA [Suspect]
     Active Substance: INFLIXIMAB-DYYB
     Dosage: 1300MG, EVERY 4 WEEKS
     Route: 042
     Dates: start: 20221003
  27. INFLECTRA [Suspect]
     Active Substance: INFLIXIMAB-DYYB
     Dosage: 1300MG, EVERY 4 WEEKS
     Route: 042
     Dates: start: 20221101
  28. INFLECTRA [Suspect]
     Active Substance: INFLIXIMAB-DYYB
     Dosage: 1300MG, EVERY 4 WEEKS
     Route: 042
     Dates: start: 20221101
  29. INFLECTRA [Suspect]
     Active Substance: INFLIXIMAB-DYYB
     Dosage: 1300MG, EVERY 4 WEEKS
     Route: 042
     Dates: start: 20221101
  30. INFLECTRA [Suspect]
     Active Substance: INFLIXIMAB-DYYB
     Dosage: 1300MG, EVERY 4 WEEKS
     Route: 042
     Dates: start: 20221101
  31. INFLECTRA [Suspect]
     Active Substance: INFLIXIMAB-DYYB
     Dosage: 1300MG, EVERY 4 WEEKS
     Route: 042
     Dates: start: 20221130
  32. INFLECTRA [Suspect]
     Active Substance: INFLIXIMAB-DYYB
     Dosage: 1300MG, EVERY 4 WEEKS
     Route: 042
     Dates: start: 20221130
  33. BENADRYL [Concomitant]
     Active Substance: DIPHENHYDRAMINE HYDROCHLORIDE
     Indication: Premedication
     Dosage: 50 MG, PRN
     Route: 048
     Dates: start: 20210528
  34. DILAUDID [Concomitant]
     Active Substance: HYDROMORPHONE HYDROCHLORIDE
     Dosage: UNK
  35. FLUOXETINE [Concomitant]
     Active Substance: FLUOXETINE HYDROCHLORIDE
     Dosage: UNK
  36. IMURAN [Concomitant]
     Active Substance: AZATHIOPRINE
     Dosage: 150 MG, DAILY
  37. SEROQUEL [Concomitant]
     Active Substance: QUETIAPINE FUMARATE
     Dosage: UNK
  38. TYLENOL [Concomitant]
     Active Substance: ACETAMINOPHEN
     Indication: Premedication
     Dosage: 650 MG, PRN
     Route: 048
     Dates: start: 20210528

REACTIONS (28)
  - Intestinal obstruction [Recovered/Resolved]
  - Condition aggravated [Not Recovered/Not Resolved]
  - Diarrhoea [Unknown]
  - Vomiting [Unknown]
  - Nausea [Unknown]
  - Abdominal pain [Recovering/Resolving]
  - Dehydration [Unknown]
  - Abdominal pain [Not Recovered/Not Resolved]
  - Diarrhoea haemorrhagic [Unknown]
  - Vomiting [Unknown]
  - Nausea [Recovering/Resolving]
  - Drug ineffective [Unknown]
  - Off label use [Unknown]
  - Off label use [Unknown]
  - Off label use [Unknown]
  - Intentional product use issue [Unknown]
  - Product dose omission issue [Unknown]
  - Scar pain [Unknown]
  - Aphthous ulcer [Unknown]
  - Mouth ulceration [Unknown]
  - Tenderness [Unknown]
  - Malaise [Unknown]
  - Diarrhoea [Unknown]
  - Pain [Unknown]
  - Abdominal discomfort [Not Recovered/Not Resolved]
  - Body temperature fluctuation [Unknown]
  - Heart rate increased [Unknown]
  - Hypertension [Unknown]

NARRATIVE: CASE EVENT DATE: 20220101
